FAERS Safety Report 5651409-X (Version None)
Quarter: 2008Q1

REPORT INFORMATION
  Report Type: 
  Country: None (occurrence: None)
  Receive Date: 20080131
  Receipt Date: 20071109
  Transmission Date: 20080703
  Serious: No
  Sender: FDA-Public Use
  Company Number: US200711002899

PATIENT
  Age: 67 Year
  Sex: Female
  Weight: 108.4 kg

DRUGS (2)
  1. BYETTA [Suspect]
     Indication: TYPE 2 DIABETES MELLITUS
     Dosage: 5 UG, 2/D, SUBCUTANEOUS
     Route: 058
     Dates: start: 20070701
  2. ALLOPURINOL [Concomitant]

REACTIONS (6)
  - BACK PAIN [None]
  - JOINT INJURY [None]
  - LOCALISED OEDEMA [None]
  - NECK PAIN [None]
  - PAIN IN EXTREMITY [None]
  - SPONDYLITIS [None]
